FAERS Safety Report 19973087 (Version 1)
Quarter: 2021Q4

REPORT INFORMATION
  Report Type: Spontaneous
  Country: US (occurrence: US)
  Receive Date: 20211019
  Receipt Date: 20211019
  Transmission Date: 20220303
  Serious: No
  Sender: FDA-Public Use
  Company Number: None

PATIENT
  Age: 38 Year
  Sex: Female

DRUGS (1)
  1. REMICADE [Suspect]
     Active Substance: INFLIXIMAB
     Indication: Hidradenitis
     Dosage: OTHER DOSE:10MG/KG;OTHER FREQUENCY:EVERY 6 WEEKS;
     Route: 042
     Dates: start: 20210701

REACTIONS (3)
  - Psoriasis [None]
  - Pustule [None]
  - Drug ineffective [None]

NARRATIVE: CASE EVENT DATE: 20210701
